FAERS Safety Report 4285698-3 (Version None)
Quarter: 2004Q1

REPORT INFORMATION
  Report Type: 
  Country: None (occurrence: None)
  Receive Date: 20040203
  Receipt Date: 20040123
  Transmission Date: 20041129
  Serious: Yes (Hospitalization, Other)
  Sender: FDA-Public Use
  Company Number: FRWYE530923JAN04

PATIENT
  Age: 20 Year
  Sex: Female

DRUGS (3)
  1. MYNOCINE (MINOCYCLINE, CAPSULE) [Suspect]
     Indication: ACNE
     Route: 048
     Dates: start: 20031105, end: 20031114
  2. HORSE CHESTNUT (HORSE CHESTNUT EXTRACT, EXTRACT) [Suspect]
     Route: 048
     Dates: start: 20031110, end: 20031110
  3. NUROFEN (IBUPROFEN) [Suspect]
     Indication: DYSMENORRHOEA
     Dates: start: 20031115, end: 20031116

REACTIONS (4)
  - PRURITUS [None]
  - RASH ERYTHEMATOUS [None]
  - URTICARIA [None]
  - VIRAL TONSILLITIS [None]
